FAERS Safety Report 4897698-0 (Version None)
Quarter: 2006Q1

REPORT INFORMATION
  Report Type: 
  Country: None (occurrence: None)
  Receive Date: 20060130
  Receipt Date: 20060130
  Transmission Date: 20060701
  Serious: Yes (Other)
  Sender: FDA-Public Use
  Company Number: None

PATIENT
  Age: 38 Year
  Sex: Female
  Weight: 74.8435 kg

DRUGS (2)
  1. CIPROFLOXACIN [Suspect]
     Indication: EAR INFECTION
     Dosage: 500 TWICE DAILY PO
     Route: 048
     Dates: start: 20060125, end: 20060127
  2. IBUPROFEN [Suspect]
     Indication: PAIN
     Dosage: 400-600 MG EVERY 4 PO
     Route: 048
     Dates: start: 20060120, end: 20060127

REACTIONS (2)
  - DIZZINESS [None]
  - HEART RATE INCREASED [None]
